FAERS Safety Report 25753076 (Version 1)
Quarter: 2025Q3

REPORT INFORMATION
  Report Type: Spontaneous
  Country: CN (occurrence: CN)
  Receive Date: 20250902
  Receipt Date: 20250902
  Transmission Date: 20251021
  Serious: Yes (Other)
  Sender: JIANGSU HENGRUI
  Company Number: CN-JIANGSU HENGRUI PHARMACEUTICALS CO., LTD.-H2025229964

PATIENT
  Age: 37 Year
  Weight: 75 kg

DRUGS (3)
  1. IRINOTECAN HYDROCHLORIDE [Suspect]
     Active Substance: IRINOTECAN HYDROCHLORIDE
     Indication: Targeted cancer therapy
  2. OXALIPLATIN [Suspect]
     Active Substance: OXALIPLATIN
     Indication: Targeted cancer therapy
  3. FLUOROURACIL [Suspect]
     Active Substance: FLUOROURACIL
     Indication: Targeted cancer therapy

REACTIONS (1)
  - Drug-induced liver injury [Recovering/Resolving]
